FAERS Safety Report 12801793 (Version 1)
Quarter: 2016Q4

REPORT INFORMATION
  Report Type: Spontaneous
  Country: NL (occurrence: NL)
  Receive Date: 20161003
  Receipt Date: 20161003
  Transmission Date: 20170207
  Serious: No
  Sender: FDA-Public Use
  Company Number: NL-TOLMAR, INC.-2016NL007104

PATIENT
  Sex: Male

DRUGS (3)
  1. ELIGARD [Suspect]
     Active Substance: LEUPROLIDE ACETATE
     Dosage: 45 MG/ PER 26 WEEKS
     Route: 058
     Dates: start: 20151113
  2. ELIGARD [Suspect]
     Active Substance: LEUPROLIDE ACETATE
     Dosage: 45 MG/ PER 26 WEEKS
     Route: 058
     Dates: start: 20160504
  3. ELIGARD [Suspect]
     Active Substance: LEUPROLIDE ACETATE
     Indication: PROSTATE CANCER
     Dosage: 45 MG, PER 26 WEEKS
     Route: 058
     Dates: start: 20120515

REACTIONS (1)
  - Drug effect incomplete [Unknown]
